FAERS Safety Report 5700629-4 (Version None)
Quarter: 2008Q2

REPORT INFORMATION
  Report Type: 
  Country: None (occurrence: None)
  Receive Date: 20080410
  Receipt Date: 20080407
  Transmission Date: 20081010
  Serious: Yes (Death)
  Sender: FDA-Public Use
  Company Number: CA-ASTRAZENECA-2008UW06881

PATIENT
  Age: 22185 Day
  Sex: Male
  Weight: 61.4 kg

DRUGS (13)
  1. CRESTOR [Suspect]
     Indication: BLOOD CHOLESTEROL
     Route: 048
     Dates: start: 20040201
  2. MONOCOR [Concomitant]
     Indication: HYPERTENSION
     Route: 048
     Dates: start: 19930401
  3. SYNTHROID [Concomitant]
     Indication: THYROID DISORDER
     Route: 048
     Dates: start: 19980401
  4. EURO-FERROUS SULFATE [Concomitant]
     Indication: SUPPLEMENTATION THERAPY
     Route: 048
     Dates: start: 20071101
  5. PMS-DEXAMEPHASONE [Concomitant]
     Indication: OSTEITIS
     Dosage: 40 MG- 4D/2ND
     Route: 048
     Dates: start: 20071101
  6. SENNOSIDES [Concomitant]
     Indication: CONSTIPATION
     Route: 048
     Dates: start: 20071101
  7. NOVO-DOCUSATE [Concomitant]
     Indication: CONSTIPATION
     Route: 048
     Dates: start: 20071101
  8. DILAUDID [Concomitant]
     Indication: PAIN
     Route: 048
     Dates: start: 20071101
  9. DURAGESIC-100 [Concomitant]
     Indication: PAIN
     Dosage: 12 UG TID EVERY 60 HOURS
     Route: 061
     Dates: start: 20071101
  10. PENTOLOC [Concomitant]
     Indication: ABDOMINAL PAIN UPPER
     Route: 048
     Dates: start: 20071101
  11. CASODEX [Concomitant]
     Indication: PROSTATE CANCER
     Route: 048
     Dates: start: 20070901
  12. ZOFRAN [Concomitant]
     Indication: NAUSEA
     Route: 048
     Dates: start: 20080301
  13. THALLDOMIDE [Concomitant]
     Indication: BONE NEOPLASM MALIGNANT
     Route: 048
     Dates: start: 20071221

REACTIONS (1)
  - MYOCARDIAL INFARCTION [None]
